FAERS Safety Report 10905217 (Version 1)
Quarter: 2015Q1

REPORT INFORMATION
  Report Type: Spontaneous
  Country: US (occurrence: CA)
  Receive Date: 20150311
  Receipt Date: 20150311
  Transmission Date: 20150721
  Serious: Yes (Other)
  Sender: FDA-Public Use
  Company Number: CA-FRI-1000075092

PATIENT
  Age: 38 Year
  Sex: Female
  Weight: 90.7 kg

DRUGS (6)
  1. BUSCOPAN [Concomitant]
     Active Substance: BUTYLSCOPOLAMINE BROMIDE
  2. SAPHRIS [Suspect]
     Active Substance: ASENAPINE MALEATE
  3. EPIVAL [Concomitant]
     Active Substance: DIVALPROEX SODIUM
  4. MIRTAZAPINE. [Concomitant]
     Active Substance: MIRTAZAPINE
  5. WELLBUTRIN SR [Concomitant]
     Active Substance: BUPROPION HYDROCHLORIDE
  6. LAMICTAL [Concomitant]
     Active Substance: LAMOTRIGINE

REACTIONS (6)
  - Electrocardiogram ST segment elevation [Recovered/Resolved]
  - Tachycardia [Recovered/Resolved]
  - Myocardial ischaemia [Recovered/Resolved]
  - Chest pain [Recovered/Resolved]
  - Angina pectoris [Recovered/Resolved]
  - Electrocardiogram QT prolonged [Recovered/Resolved]
